FAERS Safety Report 7006302-7 (Version None)
Quarter: 2010Q3

REPORT INFORMATION
  Report Type: 
  Country: None (occurrence: None)
  Receive Date: 20100921
  Receipt Date: 20100820
  Transmission Date: 20110219
  Serious: No
  Sender: FDA-Public Use
  Company Number: US-PFIZER INC-2010108288

PATIENT
  Sex: Female
  Weight: 56.236 kg

DRUGS (1)
  1. FLAGYL [Suspect]
     Dosage: UNK

REACTIONS (4)
  - DIZZINESS [None]
  - HYPERHIDROSIS [None]
  - HYPERSENSITIVITY [None]
  - VISUAL IMPAIRMENT [None]
